FAERS Safety Report 14264357 (Version 1)
Quarter: 2017Q4

REPORT INFORMATION
  Report Type: Spontaneous
  Country: US (occurrence: US)
  Receive Date: 20171208
  Receipt Date: 20171208
  Transmission Date: 20180321
  Serious: No
  Sender: FDA-Public Use
  Company Number: US-JAZZ-2017-US-011657

PATIENT
  Sex: Female

DRUGS (35)
  1. GLUTAMINE [Concomitant]
     Active Substance: GLUTAMINE
  2. MAGNESIUM OXIDE. [Concomitant]
     Active Substance: MAGNESIUM OXIDE
  3. ALOE VERA [Concomitant]
     Active Substance: ALOE VERA LEAF
  4. VITAMIN B12 [Concomitant]
     Active Substance: CYANOCOBALAMIN
  5. KIRKLANDS CHILDRENS ALLER TEC [Concomitant]
     Active Substance: CETIRIZINE HYDROCHLORIDE
  6. CALMS FORTE [Concomitant]
  7. XYREM [Suspect]
     Active Substance: SODIUM OXYBATE
     Indication: NARCOLEPSY
     Dosage: 2.25G, BID
     Route: 048
     Dates: start: 201101, end: 201103
  8. MARSHMALLOW                        /01645701/ [Concomitant]
  9. TAURINE [Concomitant]
     Active Substance: TAURINE
  10. CAT^S CLAW [Concomitant]
     Active Substance: CAT^S CLAW
  11. FISH OIL 1-A-DAY + VITAMIN D3 [Concomitant]
  12. LAMICTAL [Concomitant]
     Active Substance: LAMOTRIGINE
  13. TYLENOL EXTRA STRENGTH [Concomitant]
     Active Substance: ACETAMINOPHEN
  14. XYREM [Suspect]
     Active Substance: SODIUM OXYBATE
     Indication: CATAPLEXY
     Dosage: 4.5G, BID
     Route: 048
     Dates: start: 201103
  15. LECITHIN [Concomitant]
     Active Substance: LECITHIN
  16. EPINEPHRINE. [Concomitant]
     Active Substance: EPINEPHRINE
  17. SLIPPERY ELM [Concomitant]
     Active Substance: ELM
  18. PROZAC [Concomitant]
     Active Substance: FLUOXETINE HYDROCHLORIDE
  19. VICODIN [Concomitant]
     Active Substance: ACETAMINOPHEN\HYDROCODONE BITARTRATE
  20. KEPPRA [Concomitant]
     Active Substance: LEVETIRACETAM
  21. ISOCORT                            /00599001/ [Concomitant]
  22. LICORICE ROOT [Concomitant]
     Active Substance: LICORICE
  23. ADDERALL [Concomitant]
     Active Substance: AMPHETAMINE ASPARTATE\AMPHETAMINE SULFATE\DEXTROAMPHETAMINE SACCHARATE\DEXTROAMPHETAMINE SULFATE
  24. GLUCOSAMINE SULFAT [Concomitant]
  25. VENLAFAXINE HCL [Concomitant]
     Active Substance: VENLAFAXINE HYDROCHLORIDE
  26. CHOLINE CITRATE [Concomitant]
  27. MARCAINE [Concomitant]
     Active Substance: BUPIVACAINE HYDROCHLORIDE
  28. VITAMIN D                          /00107901/ [Concomitant]
     Active Substance: ERGOCALCIFEROL
  29. ZINC CHELATE [Concomitant]
  30. CALCIUM + MAGNESIUM [Concomitant]
  31. CITRUS [Concomitant]
  32. MIRENA [Concomitant]
     Active Substance: LEVONORGESTREL
  33. SEPTOCAINE [Concomitant]
     Active Substance: ARTICAINE HYDROCHLORIDE\EPINEPHRINE BITARTRATE
  34. OFLOXACIN. [Concomitant]
     Active Substance: OFLOXACIN
  35. IBUPROFEN. [Concomitant]
     Active Substance: IBUPROFEN

REACTIONS (1)
  - Dark circles under eyes [Not Recovered/Not Resolved]
